FAERS Safety Report 5972556-9 (Version None)
Quarter: 2008Q4

REPORT INFORMATION
  Report Type: 
  Country: None (occurrence: None)
  Receive Date: 20081201
  Receipt Date: 20081126
  Transmission Date: 20090506
  Serious: Yes (Disabling)
  Sender: FDA-Public Use
  Company Number: B0547827A

PATIENT
  Age: 73 Year
  Sex: Female

DRUGS (1)
  1. ARIXTRA [Suspect]
     Indication: THROMBOSIS PROPHYLAXIS
     Dosage: 1.5MG PER DAY
     Route: 058
     Dates: start: 20081101, end: 20081109

REACTIONS (5)
  - APHASIA [None]
  - CEREBRAL HAEMORRHAGE [None]
  - HEMIPLEGIA [None]
  - NAUSEA [None]
  - SUBDURAL HAEMATOMA [None]
